FAERS Safety Report 8479597-0 (Version None)
Quarter: 2012Q2

REPORT INFORMATION
  Report Type: 
  Country: None (occurrence: None)
  Receive Date: 20120629
  Receipt Date: 20120622
  Transmission Date: 20120825
  Serious: Yes (Hospitalization, Other)
  Sender: FDA-Public Use
  Company Number: US-PFIZER INC-2012128866

PATIENT
  Sex: Female

DRUGS (3)
  1. DILANTIN [Suspect]
     Dosage: 100 MG, 3X/DAY
     Route: 048
     Dates: start: 20011218, end: 20011219
  2. DILANTIN [Suspect]
     Dosage: 300 MG EVERY NIGHT AT BEDTIME
     Route: 048
     Dates: start: 20011225, end: 20020114
  3. DILANTIN [Suspect]
     Dosage: 100 MG, 1X/DAY, EVERY NIGHT AT BED TIME
     Route: 048
     Dates: start: 20011222

REACTIONS (1)
  - STEVENS-JOHNSON SYNDROME [None]
